FAERS Safety Report 7102555-5 (Version None)
Quarter: 2010Q4

REPORT INFORMATION
  Report Type: 
  Country: None (occurrence: None)
  Receive Date: 20101115
  Receipt Date: 20101109
  Transmission Date: 20110411
  Serious: Yes (Hospitalization)
  Sender: FDA-Public Use
  Company Number: US-ROXANE LABORATORIES, INC.-2010-RO-01481RO

PATIENT
  Age: 67 Year
  Sex: Male
  Weight: 98 kg

DRUGS (18)
  1. CODEINE SUL TAB [Suspect]
     Indication: PAIN IN EXTREMITY
     Route: 048
     Dates: start: 20100627
  2. CODEINE SUL TAB [Suspect]
     Indication: ARTHRALGIA
  3. NEURONTIN [Suspect]
     Indication: PAIN
     Route: 048
     Dates: start: 20100614
  4. ADVIL [Concomitant]
     Indication: PAIN IN EXTREMITY
     Dates: start: 20091126
  5. TYLENOL EXTRA STRENGTH [Concomitant]
     Indication: PAIN IN EXTREMITY
     Dates: start: 20100309
  6. TYLENOL EXTRA STRENGTH [Concomitant]
     Indication: ARTHRALGIA
  7. GLUCOSAMINE [Concomitant]
     Dates: start: 20090801
  8. CENTRUM [Concomitant]
     Dates: start: 20040101
  9. NORVASC [Concomitant]
     Dates: start: 20090701
  10. VALSARTAN [Concomitant]
     Dates: start: 20040101
  11. CYMBALTA [Concomitant]
     Dates: start: 20020101
  12. TRAZODONE [Concomitant]
     Dates: start: 20020101
  13. UROXATRAL [Concomitant]
     Dates: start: 20090101
  14. PRILOSEC [Concomitant]
     Indication: PROPHYLAXIS
     Dates: start: 20100512
  15. DIOVAN [Concomitant]
     Dates: start: 20040101
  16. CIALIS [Concomitant]
     Dates: start: 20050101
  17. ALEVE (CAPLET) [Concomitant]
     Indication: PAIN
     Dates: start: 20100501
  18. STEROID [Concomitant]
     Dates: start: 20100627, end: 20100627

REACTIONS (2)
  - ILEUS PARALYTIC [None]
  - POST PROCEDURAL COMPLICATION [None]
